FAERS Safety Report 18284938 (Version 2)
Quarter: 2020Q4

REPORT INFORMATION
  Report Type: Spontaneous
  Country: US (occurrence: US)
  Receive Date: 20200918
  Receipt Date: 20201105
  Transmission Date: 20210113
  Serious: No
  Sender: FDA-Public Use
  Company Number: US-JNJFOC-20200929900

PATIENT
  Age: 49 Year
  Sex: Male

DRUGS (4)
  1. HALDOL [Suspect]
     Active Substance: HALOPERIDOL
     Indication: SUBSTANCE USE DISORDER
  2. HALDOL [Suspect]
     Active Substance: HALOPERIDOL
     Indication: SCHIZOAFFECTIVE DISORDER
     Route: 030
  3. HALDOL [Suspect]
     Active Substance: HALOPERIDOL
     Indication: MAJOR DEPRESSION
  4. HALDOL [Suspect]
     Active Substance: HALOPERIDOL
     Indication: POST-TRAUMATIC STRESS DISORDER

REACTIONS (3)
  - Therapeutic product effect decreased [Unknown]
  - Drug tolerance [Unknown]
  - Affective disorder [Unknown]
